FAERS Safety Report 17230259 (Version 3)
Quarter: 2020Q1

REPORT INFORMATION
  Report Type: Spontaneous
  Country: TW (occurrence: TW)
  Receive Date: 20200103
  Receipt Date: 20200127
  Transmission Date: 20200409
  Serious: Yes (Hospitalization, Other)
  Sender: FDA-Public Use
  Company Number: TW-SA-2019SA360792

PATIENT
  Age: 51 Year
  Sex: Male

DRUGS (8)
  1. PRIFTIN [Suspect]
     Active Substance: RIFAPENTINE
     Indication: PROPHYLAXIS
     Dosage: 900 MG, QW
     Route: 048
     Dates: start: 20191204, end: 20191225
  2. COLCHICINE. [Concomitant]
     Active Substance: COLCHICINE
     Dosage: 1 DF, QD
  3. SEVIKAR [Concomitant]
     Active Substance: AMLODIPINE BESYLATE\OLMESARTAN MEDOXOMIL
     Dosage: 1 DF, QD
  4. MOPRIDE [MOSAPRIDE CITRATE] [Concomitant]
     Dosage: 1 DF, TID
  5. ISONIAZID. [Concomitant]
     Active Substance: ISONIAZID
     Indication: PROPHYLAXIS
     Dosage: 900 MG, QW
     Route: 048
     Dates: start: 20191204, end: 20191225
  6. ULSTOP [FAMOTIDINE] [Concomitant]
     Dosage: 1 DF, BID
  7. FEBURIC [Concomitant]
     Active Substance: FEBUXOSTAT
     Dosage: 1 DF, QD
  8. CRESTOR [Concomitant]
     Active Substance: ROSUVASTATIN CALCIUM
     Dosage: 1 DF, QD
     Route: 065

REACTIONS (9)
  - Coma [Recovered/Resolved]
  - Somnolence [Recovered/Resolved]
  - Dizziness [Recovered/Resolved]
  - Hypotension [Recovered/Resolved]
  - Discomfort [Recovered/Resolved]
  - Cold sweat [Recovered/Resolved]
  - Asthenia [Recovered/Resolved]
  - Muscular weakness [Recovered/Resolved]
  - Chills [Recovered/Resolved]

NARRATIVE: CASE EVENT DATE: 20191225
